FAERS Safety Report 9006024 (Version 2)
Quarter: 2013Q4

REPORT INFORMATION
  Report Type: Report from Study
  Country: US (occurrence: US)
  Receive Date: 20130109
  Receipt Date: 20131007
  Transmission Date: 20140711
  Serious: Yes (Hospitalization)
  Sender: FDA-Public Use
  Company Number: PHEH2013US000817

PATIENT
  Sex: Female

DRUGS (3)
  1. MYFORTIC [Suspect]
     Indication: RENAL TRANSPLANT
     Dosage: 540 MG, BID
     Route: 048
  2. MYFORTIC [Suspect]
     Dosage: 180 MG, BID
     Route: 048
  3. MYFORTIC [Suspect]
     Dosage: 360 UNK, UNK
     Route: 048

REACTIONS (3)
  - Cytomegalovirus infection [Unknown]
  - Malaise [Unknown]
  - White blood cell count decreased [Unknown]
